FAERS Safety Report 9090907 (Version 1)
Quarter: 2013Q1

REPORT INFORMATION
  Report Type: Report from Study
  Country: US (occurrence: US)
  Receive Date: 20130201
  Receipt Date: 20130201
  Transmission Date: 20140127
  Serious: No
  Sender: FDA-Public Use
  Company Number: US-ABBOTT-12P-163-1018227-00

PATIENT
  Age: 13 Year
  Sex: Female

DRUGS (5)
  1. HUMIRA [Suspect]
     Indication: CROHN^S DISEASE
     Dosage: USED 3 PENS THE FIRST DAY
     Dates: start: 20121202
  2. AZATHIOPRINE [Concomitant]
     Indication: CROHN^S DISEASE
  3. PENTASA [Concomitant]
     Indication: CROHN^S DISEASE
  4. FLAGYL [Concomitant]
     Indication: CROHN^S DISEASE
     Dosage: DOSAGE UNKNOWN-TWO TIMES DAILY
  5. PROCTOFOAM [Concomitant]
     Indication: CROHN^S DISEASE

REACTIONS (3)
  - Off label use [Not Recovered/Not Resolved]
  - Pain [Recovered/Resolved]
  - Crying [Recovered/Resolved]
